FAERS Safety Report 5037330-9 (Version None)
Quarter: 2006Q2

REPORT INFORMATION
  Report Type: 
  Country: None (occurrence: None)
  Receive Date: 20060628
  Receipt Date: 20060619
  Transmission Date: 20061013
  Serious: Yes (Other)
  Sender: FDA-Public Use
  Company Number: US-ROCHE-452450

PATIENT
  Age: 57 Year
  Sex: Female

DRUGS (2)
  1. PEGASYS [Suspect]
     Route: 058
     Dates: start: 20050615, end: 20060505
  2. COPEGUS [Suspect]
     Route: 048
     Dates: start: 20050615, end: 20060505

REACTIONS (3)
  - HAEMATOCHEZIA [None]
  - POLYP [None]
  - SLEEP DISORDER [None]
